FAERS Safety Report 4914980-9 (Version None)
Quarter: 2006Q1

REPORT INFORMATION
  Report Type: 
  Country: None (occurrence: None)
  Receive Date: 20060217
  Receipt Date: 20050912
  Transmission Date: 20060701
  Serious: Yes (Hospitalization)
  Sender: FDA-Public Use
  Company Number: HQWYE461914SEP05

PATIENT
  Sex: Female
  Weight: 39 kg

DRUGS (6)
  1. ENBREL [Suspect]
     Indication: RHEUMATOID ARTHRITIS
     Route: 058
     Dates: start: 20050422, end: 20050906
  2. AZULFIDINE [Concomitant]
     Indication: RHEUMATOID ARTHRITIS
     Route: 048
     Dates: start: 20041022, end: 20050908
  3. PREDNISOLONE [Concomitant]
     Indication: RHEUMATOID ARTHRITIS
     Route: 048
     Dates: end: 20050908
  4. ZANTAC [Concomitant]
     Indication: GASTRITIS
     Route: 048
     Dates: end: 20050908
  5. PRAVASTATIN SODIUM [Concomitant]
     Indication: HYPERLIPIDAEMIA
     Route: 048
     Dates: end: 20050908
  6. UNSPECIFIED MEDICATION [Concomitant]
     Indication: RETINAL DEPIGMENTATION
     Route: 048
     Dates: end: 20050908

REACTIONS (1)
  - APLASIA PURE RED CELL [None]
